FAERS Safety Report 19357017 (Version 1)
Quarter: 2021Q2

REPORT INFORMATION
  Report Type: Spontaneous
  Country: US (occurrence: US)
  Receive Date: 20210602
  Receipt Date: 20210602
  Transmission Date: 20210717
  Serious: No
  Sender: FDA-Public Use
  Company Number: US-STRIDES ARCOLAB LIMITED-2021SP005353

PATIENT
  Age: 53 Year
  Sex: Female

DRUGS (14)
  1. FEXOFENADINE [Suspect]
     Active Substance: FEXOFENADINE HYDROCHLORIDE
     Indication: BRACHIORADIAL PRURITUS
     Dosage: UNK
     Route: 065
  2. HYDROXYZINE [Suspect]
     Active Substance: HYDROXYZINE HYDROCHLORIDE
     Indication: BRACHIORADIAL PRURITUS
     Dosage: UNK
     Route: 065
  3. OZENOXACIN. [Suspect]
     Active Substance: OZENOXACIN
     Indication: BRACHIORADIAL PRURITUS
     Dosage: CREAM
     Route: 065
  4. GABAPENTIN. [Suspect]
     Active Substance: GABAPENTIN
     Indication: BRACHIORADIAL PRURITUS
     Dosage: UNK
     Route: 065
  5. TRIAMCINOLONE ACETONIDE. [Suspect]
     Active Substance: TRIAMCINOLONE ACETONIDE
     Indication: BRACHIORADIAL PRURITUS
     Dosage: 0.1 PERCENT CREAM
     Route: 065
  6. CRISABOROLE [Suspect]
     Active Substance: CRISABOROLE
     Indication: BRACHIORADIAL PRURITUS
     Dosage: 2 PERCENT CREAM
     Route: 061
  7. FLUOCINONIDE. [Suspect]
     Active Substance: FLUOCINONIDE
     Indication: BRACHIORADIAL PRURITUS
     Dosage: 0.05 PERCENT CREAM
     Route: 061
  8. MUPIROCIN. [Suspect]
     Active Substance: MUPIROCIN
     Indication: BRACHIORADIAL PRURITUS
     Dosage: 2 PERCENT OINTMENT
     Route: 061
  9. PREGABALIN. [Suspect]
     Active Substance: PREGABALIN
     Indication: BRACHIORADIAL PRURITUS
     Dosage: UNK
     Route: 065
  10. CETIRIZINE [Suspect]
     Active Substance: CETIRIZINE HYDROCHLORIDE
     Indication: BRACHIORADIAL PRURITUS
     Dosage: UNK
     Route: 065
  11. CLOBETASOL [Suspect]
     Active Substance: CLOBETASOL
     Indication: BRACHIORADIAL PRURITUS
     Dosage: 0.5 PERCENT OINTMENT
     Route: 061
  12. COTRIMOXAZOLE [Suspect]
     Active Substance: SULFAMETHOXAZOLE\TRIMETHOPRIM
     Indication: BRACHIORADIAL PRURITUS
     Dosage: 800MG/160MG
     Route: 065
  13. DOXEPIN [Suspect]
     Active Substance: DOXEPIN
     Indication: BRACHIORADIAL PRURITUS
     Dosage: 5 PERCENT CREAM
     Route: 061
  14. CEFALEXIN [Suspect]
     Active Substance: CEPHALEXIN
     Indication: BRACHIORADIAL PRURITUS
     Dosage: 500 MILLIGRAM
     Route: 065

REACTIONS (2)
  - Drug ineffective [Unknown]
  - Off label use [Unknown]
